FAERS Safety Report 5529532-X (Version None)
Quarter: 2007Q4

REPORT INFORMATION
  Report Type: 
  Country: None (occurrence: None)
  Receive Date: 20071129
  Receipt Date: 20071121
  Transmission Date: 20080405
  Serious: Yes (Other)
  Sender: FDA-Public Use
  Company Number: AU-PFIZER INC-2007098286

PATIENT
  Sex: Female

DRUGS (3)
  1. LIPITOR [Suspect]
  2. DIAMICRON [Suspect]
     Indication: DIABETES MELLITUS
  3. ALL OTHER THERAPEUTIC PRODUCTS [Concomitant]

REACTIONS (4)
  - DIABETES MELLITUS [None]
  - FEELING ABNORMAL [None]
  - MUSCLE SPASMS [None]
  - PARAESTHESIA [None]
